FAERS Safety Report 22359512 (Version 1)
Quarter: 2023Q2

REPORT INFORMATION
  Report Type: Spontaneous
  Country: US (occurrence: US)
  Receive Date: 20230524
  Receipt Date: 20230524
  Transmission Date: 20230721
  Serious: No
  Sender: FDA-Public Use
  Company Number: US-BION-010906

PATIENT
  Sex: Female

DRUGS (1)
  1. MOTRIN IB [Suspect]
     Active Substance: IBUPROFEN
     Indication: Pain
     Dosage: ONCE A DAY, 2 GEL CAPS, STRENGTH: 200MG
     Dates: start: 20220728

REACTIONS (2)
  - Oral discomfort [Unknown]
  - Wrong technique in product usage process [Not Recovered/Not Resolved]
